FAERS Safety Report 25620425 (Version 3)
Quarter: 2025Q3

REPORT INFORMATION
  Report Type: Spontaneous
  Country: US (occurrence: US)
  Receive Date: 20250730
  Receipt Date: 20250918
  Transmission Date: 20251021
  Serious: Yes (Hospitalization)
  Sender: ROCHE
  Company Number: US-ROCHE-10000348201

PATIENT
  Sex: Female

DRUGS (3)
  1. ACTEMRA [Suspect]
     Active Substance: TOCILIZUMAB
     Indication: Rheumatoid arthritis
     Dosage: (STRENGTH REPORTED AS: 162 MG/0.9ML)
     Route: 058
     Dates: start: 20241214
  2. ACTEMRA [Suspect]
     Active Substance: TOCILIZUMAB
     Dosage: (STRENGTH REPORTED AS: 162 MG/0.9ML)
     Route: 058
     Dates: start: 20241214
  3. TYMLOS [Concomitant]
     Active Substance: ABALOPARATIDE

REACTIONS (11)
  - Rheumatoid arthritis [Unknown]
  - Loss of personal independence in daily activities [Unknown]
  - Pain [Unknown]
  - Infection [Unknown]
  - Fatigue [Unknown]
  - Alopecia [Unknown]
  - Headache [Unknown]
  - Arthralgia [Unknown]
  - Nausea [Unknown]
  - Vomiting [Unknown]
  - Illness [Unknown]
